FAERS Safety Report 25243120 (Version 2)
Quarter: 2025Q3

REPORT INFORMATION
  Report Type: Spontaneous
  Country: JP (occurrence: JP)
  Receive Date: 20250428
  Receipt Date: 20250711
  Transmission Date: 20251021
  Serious: Yes (Other)
  Sender: GLAXOSMITHKLINE
  Company Number: JP-GSKJP-JP2025JPN048508AA

PATIENT

DRUGS (3)
  1. DAPRODUSTAT [Suspect]
     Active Substance: DAPRODUSTAT
  2. JARDIANCE [Concomitant]
     Active Substance: EMPAGLIFLOZIN
  3. ENTRESTO [Concomitant]
     Active Substance: SACUBITRIL\VALSARTAN

REACTIONS (2)
  - Diabetes mellitus [Unknown]
  - Cardiac failure [Unknown]

NARRATIVE: CASE EVENT DATE: 20250422
